FAERS Safety Report 15129053 (Version 3)
Quarter: 2018Q3

REPORT INFORMATION
  Report Type: Spontaneous
  Country: US (occurrence: US)
  Receive Date: 20180711
  Receipt Date: 20180801
  Transmission Date: 20181010
  Serious: Yes (Hospitalization, Other)
  Sender: FDA-Public Use
  Company Number: US-B.I. PHARMACEUTICALS,INC./RIDGEFIELD-2018-BI-035414

PATIENT
  Age: 66 Year
  Sex: Male

DRUGS (1)
  1. OFEV [Suspect]
     Active Substance: NINTEDANIB
     Indication: IDIOPATHIC PULMONARY FIBROSIS
     Route: 048

REACTIONS (7)
  - Ammonia increased [Not Recovered/Not Resolved]
  - Oedema peripheral [Unknown]
  - Carbon dioxide increased [Not Recovered/Not Resolved]
  - Dyspnoea [Unknown]
  - Aortic valve prolapse [Unknown]
  - Cardiac failure congestive [Unknown]
  - Pulmonary arterial pressure increased [Unknown]

NARRATIVE: CASE EVENT DATE: 20180702
